FAERS Safety Report 8481082-7 (Version None)
Quarter: 2012Q3

REPORT INFORMATION
  Report Type: 
  Country: None (occurrence: None)
  Receive Date: 20120702
  Receipt Date: 20120627
  Transmission Date: 20120928
  Serious: Yes (Death, Hospitalization, Other)
  Sender: FDA-Public Use
  Company Number: PHEH2012US012229

PATIENT
  Sex: Male

DRUGS (37)
  1. DUONEB [Concomitant]
     Indication: WHEEZING
  2. AUGMENTIN '125' [Concomitant]
     Dosage: 500 MG, TID
  3. DECADRON [Concomitant]
  4. ZOMETA [Suspect]
     Dosage: 4 MG, EVERY 3 WEEKS
     Route: 042
     Dates: start: 20120503, end: 20120503
  5. MAGNESIUM OXIDE [Concomitant]
     Dosage: 400 MG, QID
  6. ZOFRAN [Concomitant]
     Indication: NAUSEA
     Dosage: 8 MG, Q12H
  7. PREDNISOLONE [Concomitant]
     Dosage: 10 MG, PILL
  8. SOLU-CORTEF [Concomitant]
  9. ACETAMINOPHEN AND OXYCODONE HCL [Concomitant]
     Indication: PAIN
     Dosage: 325 /5 MG,
  10. DEXAMETHASONE [Concomitant]
  11. PROCHLORPERAZINE [Concomitant]
     Dosage: 10 MG, Q6H
  12. PANTOPRAZOLE SODIUM [Concomitant]
     Dosage: 40 MG, DAILY
     Route: 048
  13. TELMISARTAN [Concomitant]
     Dosage: 40 MG
  14. ROXANOL [Concomitant]
     Indication: PAIN
     Dosage: 20 MG/ML, UNK
     Route: 060
  15. FOLIC ACID [Concomitant]
     Dosage: 1 MG, DAILY
  16. ALBUTEROL [Concomitant]
  17. SCOPOLAMINE [Concomitant]
     Dosage: 5 MG, Q72H
  18. CEPHALEXIN [Concomitant]
     Dosage: 500 MG, Q6H
  19. WARFARIN SODIUM [Concomitant]
     Dosage: 2 MG,
  20. CIPROFLOXACIN HCL [Concomitant]
     Dosage: 500 MG, BID
     Route: 048
  21. MICARDIS [Concomitant]
  22. ALBUTEROL SULFATE [Concomitant]
     Dosage: 0.09 MG,
  23. ATIVAN [Concomitant]
     Indication: ANXIETY
     Dosage: 1 MG, UNK
     Route: 060
  24. PERCOCET [Concomitant]
     Indication: PAIN
     Dosage: 5/325 ONE PILL
  25. MAGIC MOUTHWASH [Concomitant]
     Dosage: 260 ML, Q4H
  26. ONDANSETRON [Concomitant]
     Dosage: 8 MG, BID
     Route: 048
  27. FERROUS SULFATE TAB [Concomitant]
     Dosage: 325 MG, BID
  28. VITAMIN B-12 [Concomitant]
  29. ZOMETA [Suspect]
     Indication: METASTASES TO BONE
     Dosage: 4 MG, EVERY 3 WEEKS
     Route: 042
     Dates: start: 20110909
  30. COLACE [Concomitant]
     Dosage: 100 MG, BID
  31. DOBELL'S SOLUTION [Concomitant]
  32. COMPAZINE [Concomitant]
     Indication: NAUSEA
     Dosage: 10 MG,
  33. PROTONIX [Concomitant]
     Dosage: 40 MG, DAILY
  34. COUMADIN [Concomitant]
     Dosage: 1 MG, PILL
  35. LORAZEPAM [Concomitant]
     Dosage: 1.5 MG, Q3H
  36. METHADONE HYDROCHLORIDE [Concomitant]
     Dosage: 1.5 MG, UNK
  37. APREPITANT [Concomitant]
     Dosage: 150 MG, EVERY 3 WEEKS

REACTIONS (36)
  - NEOPLASM PROGRESSION [None]
  - MASTOIDITIS [None]
  - GENERAL PHYSICAL HEALTH DETERIORATION [None]
  - CHRONIC OBSTRUCTIVE PULMONARY DISEASE [None]
  - WHITE BLOOD CELL COUNT INCREASED [None]
  - INFLAMMATION [None]
  - CELLULITIS [None]
  - ERYTHEMA [None]
  - BLOOD SODIUM DECREASED [None]
  - TACHYCARDIA [None]
  - METASTASES TO LIVER [None]
  - HAEMATOCRIT DECREASED [None]
  - HYPOTENSION [None]
  - SINUSITIS [None]
  - NAUSEA [None]
  - HAEMOGLOBIN DECREASED [None]
  - RESPIRATORY FAILURE [None]
  - ATRIAL FLUTTER [None]
  - PLEURAL EFFUSION [None]
  - NEOPLASM MALIGNANT [None]
  - ARRHYTHMIA [None]
  - BLOOD POTASSIUM DECREASED [None]
  - RED BLOOD CELL COUNT DECREASED [None]
  - SEPTIC SHOCK [None]
  - PNEUMONIA [None]
  - METASTASES TO ADRENALS [None]
  - HEPATIC LESION [None]
  - CARDIOMEGALY [None]
  - LUNG ADENOCARCINOMA [None]
  - PULMONARY EMBOLISM [None]
  - MOVEMENT DISORDER [None]
  - BLOOD CALCIUM DECREASED [None]
  - PERICARDIAL EFFUSION [None]
  - SINUS DISORDER [None]
  - SWELLING [None]
  - RETCHING [None]
